FAERS Safety Report 6830988-0 (Version None)
Quarter: 2010Q3

REPORT INFORMATION
  Report Type: 
  Country: None (occurrence: None)
  Receive Date: 20100712
  Receipt Date: 20100629
  Transmission Date: 20110219
  Serious: Yes (Death)
  Sender: FDA-Public Use
  Company Number: GB-ALLERGAN-1008531US

PATIENT
  Age: 41 Year
  Sex: Female

DRUGS (15)
  1. LACRI-LUBE [Suspect]
     Indication: PRODUCT USED FOR UNKNOWN INDICATION
     Dosage: 2 GTT, QHS
     Route: 047
  2. ZAPONEX [Suspect]
     Indication: HALLUCINATION
     Dosage: 75 MG, QAM
     Route: 048
     Dates: start: 20080603, end: 20080227
  3. ZAPONEX [Suspect]
     Dosage: 135 MG, QPM
     Route: 048
     Dates: start: 20080603, end: 20080227
  4. CIPRAMIL [Concomitant]
     Dosage: 20 MG, QD
     Route: 048
  5. DULCOLAX [Concomitant]
     Dosage: 10 MG, PRN
     Route: 054
  6. LAMICTAL [Concomitant]
     Indication: EPILEPSY
     Dosage: 100 MG, QPM
     Route: 048
  7. ACETAMINOPHEN [Concomitant]
     Dosage: 1000 MG, QID
     Route: 048
  8. SCOPODERM [Concomitant]
     Dosage: 1 MG, EVERY 72 HOURS
     Route: 061
  9. PRILOSEC [Concomitant]
     Dosage: 10 ML, QD
     Route: 048
  10. SODIUM CHLORIDE [Concomitant]
     Dosage: 5 UNK, UNK
  11. SUDOCREM [Concomitant]
     Dosage: UNK
     Route: 061
  12. TOBREX [Concomitant]
  13. CARBOMER [Concomitant]
     Dosage: 2 GTT, Q6HR
     Route: 047
  14. BACTOFERON [Concomitant]
     Dosage: 5 ML, BID
     Route: 048
  15. URO TAINER SOLN R [Concomitant]
     Dosage: UNK

REACTIONS (5)
  - ACUTE DISSEMINATED ENCEPHALOMYELITIS [None]
  - CARDIAC ARREST [None]
  - PULMONARY EMBOLISM [None]
  - RESPIRATORY ARREST [None]
  - RESPIRATORY TRACT INFECTION [None]
